FAERS Safety Report 19176239 (Version 2)
Quarter: 2021Q2

REPORT INFORMATION
  Report Type: Spontaneous
  Country: HR (occurrence: HR)
  Receive Date: 20210423
  Receipt Date: 20210505
  Transmission Date: 20210717
  Serious: Yes (Other)
  Sender: FDA-Public Use
  Company Number: HR-PFIZER INC-2021433500

PATIENT
  Age: 46 Year
  Sex: Male
  Weight: 90 kg

DRUGS (1)
  1. ZESSLY [Suspect]
     Active Substance: INFLIXIMAB
     Indication: INFLAMMATORY BOWEL DISEASE
     Dosage: 500 MG, CYCLIC (Q4W)
     Route: 042
     Dates: start: 20191129, end: 20210301

REACTIONS (2)
  - Inflammatory bowel disease [Unknown]
  - Endoscopy abnormal [Unknown]

NARRATIVE: CASE EVENT DATE: 20191129
